FAERS Safety Report 20359359 (Version 2)
Quarter: 2023Q1

REPORT INFORMATION
  Report Type: Spontaneous
  Country: US (occurrence: US)
  Receive Date: 20220121
  Receipt Date: 20230125
  Transmission Date: 20230418
  Serious: Yes (Death, Other)
  Sender: FDA-Public Use
  Company Number: US-TERSERA THERAPEUTICS LLC-2021TRS003721

PATIENT

DRUGS (7)
  1. PRIALT [Suspect]
     Active Substance: ZICONOTIDE ACETATE
     Indication: Back pain
     Dosage: 0.634 MCG, QD (CONCENTRATION: 1 MCG)
     Route: 037
  2. PRIALT [Suspect]
     Active Substance: ZICONOTIDE ACETATE
     Dosage: 0.570 MCG, QD (CONCENTRATION: 1 MCG)
     Route: 037
     Dates: start: 20201229
  3. PRIALT [Suspect]
     Active Substance: ZICONOTIDE ACETATE
     Dosage: 0.599 MCG, QD (CONCENTRATION: 1 MCG)
     Route: 037
     Dates: start: 20210119
  4. PRIALT [Suspect]
     Active Substance: ZICONOTIDE ACETATE
     Dosage: 0.619 MCG, QD (CONCENTRATION: 2 MCG)
     Route: 037
  5. PRIALT [Suspect]
     Active Substance: ZICONOTIDE ACETATE
     Dosage: 0.588 MCG, QD (CONCENTRATION: 2 MCG)
     Route: 037
  6. PRIALT [Suspect]
     Active Substance: ZICONOTIDE ACETATE
     Dosage: (DECREASE FROM 0.55 MCG/D TO 0.5 MCG/D)
     Route: 037
     Dates: start: 20210604
  7. NORCO [Suspect]
     Active Substance: ACETAMINOPHEN\HYDROCODONE BITARTRATE
     Indication: Product used for unknown indication
     Dosage: 3 UNK, QD  (DECREASED TO 3 PER DAY)
     Route: 065

REACTIONS (4)
  - Death [Fatal]
  - Constipation [Unknown]
  - Mental status changes [Recovered/Resolved]
  - Anal incontinence [Unknown]

NARRATIVE: CASE EVENT DATE: 20201203
